FAERS Safety Report 15076595 (Version 1)
Quarter: 2018Q3

REPORT INFORMATION
  Report Type: Spontaneous
  Country: PL (occurrence: PL)
  Receive Date: 20180627
  Receipt Date: 20180627
  Transmission Date: 20181010
  Serious: Yes (Hospitalization, Disabling)
  Sender: FDA-Public Use
  Company Number: PL-ACELLA PHARMACEUTICALS, LLC-2050065

PATIENT
  Age: 24 Year
  Sex: Male

DRUGS (2)
  1. POPPY SEED. [Suspect]
     Active Substance: POPPY SEED
  2. BROMPHENIRAMINE MAL, PSEUDOEPHEDRINE HCL, AND DEXTROMETHORPHAN HBR [Suspect]
     Active Substance: BROMPHENIRAMINE MALEATE\DEXTROMETHORPHAN HYDROBROMIDE\PSEUDOEPHEDRINE HYDROCHLORIDE
     Indication: PRODUCT USED FOR UNKNOWN INDICATION

REACTIONS (15)
  - Electrolyte imbalance [Recovered/Resolved]
  - Miosis [Recovered/Resolved]
  - Pneumonia [Recovered/Resolved]
  - Foaming at mouth [Recovered/Resolved]
  - Drug screen positive [None]
  - Rhabdomyolysis [Recovered/Resolved]
  - Atrial fibrillation [Recovered/Resolved]
  - Hypotension [Recovered/Resolved]
  - Poisoning [None]
  - Leukocytosis [None]
  - Quadriplegia [Recovering/Resolving]
  - Trismus [Recovered/Resolved]
  - Electrocardiogram QRS complex prolonged [None]
  - Respiration abnormal [Recovered/Resolved]
  - Loss of consciousness [Recovered/Resolved]
